FAERS Safety Report 24194274 (Version 1)
Quarter: 2024Q3

REPORT INFORMATION
  Report Type: Spontaneous
  Country: FR (occurrence: FR)
  Receive Date: 20240809
  Receipt Date: 20240809
  Transmission Date: 20241016
  Serious: Yes (Hospitalization)
  Sender: MYLAN
  Company Number: None

PATIENT
  Age: 52 Year
  Sex: Female
  Weight: 61 kg

DRUGS (10)
  1. LEVOFLOXACIN [Interacting]
     Active Substance: LEVOFLOXACIN
     Indication: Post procedural infection
     Dosage: 750 MILLIGRAM, QD
     Route: 048
     Dates: start: 20240418, end: 20240424
  2. LEVOFLOXACIN [Interacting]
     Active Substance: LEVOFLOXACIN
     Dosage: 500 MILLIGRAM, QD
     Route: 048
     Dates: start: 20240412, end: 20240418
  3. SERTRALINE [Interacting]
     Active Substance: SERTRALINE HYDROCHLORIDE
     Indication: Depression
     Dosage: 50 MILLIGRAM, QD
     Route: 048
     Dates: start: 20240305
  4. ENOXAPARIN SODIUM [Concomitant]
     Active Substance: ENOXAPARIN SODIUM
     Indication: Thrombosis prophylaxis
     Dosage: 4,000 IU (40 MG) IN 0.4 ML, INJECTABLE SOLUTION IN PREFILLED SYRINGE
     Route: 058
     Dates: start: 20230725
  5. SMECTA [Concomitant]
     Active Substance: MONTMORILLONITE
     Indication: Diarrhoea
     Dosage: 1 DOSAGE FORM (POWDER FOR ORAL SUSPENSION IN SACHET )
     Route: 048
  6. FERROUS FUMARATE [Concomitant]
     Active Substance: FERROUS FUMARATE
     Indication: Iron deficiency anaemia
     Dosage: 1 DOSAGE FORM, BID
     Route: 048
  7. REFRESH CELLUVISC [Concomitant]
     Active Substance: CARBOXYMETHYLCELLULOSE SODIUM
     Indication: Dry eye
     Dosage: 2 GTT DROPS (DROP (1/12 MILLILITRE)) (SINGLE-DOSE EYE DROPS)
     Route: 047
  8. DAFALGAN [Concomitant]
     Active Substance: ACETAMINOPHEN
     Indication: Pain
     Dosage: 1 DOSAGE FORM
     Route: 048
  9. CLINDAMYCIN HYDROCHLORIDE [Concomitant]
     Active Substance: CLINDAMYCIN HYDROCHLORIDE
     Indication: Post procedural infection
     Dosage: 600 MILLIGRAM, Q8H
     Route: 048
     Dates: start: 20240408, end: 20240520
  10. SCOPOLAMINE [Concomitant]
     Active Substance: SCOPOLAMINE
     Indication: Salivary hypersecretion
     Dosage: 1 DOSAGE FORM, QD 1 MG/72 HOURS, (TRANSDERMAL PATCH)
     Route: 062

REACTIONS (2)
  - Seizure [Recovered/Resolved]
  - Drug interaction [Unknown]

NARRATIVE: CASE EVENT DATE: 20240422
